FAERS Safety Report 25276499 (Version 1)
Quarter: 2025Q2

REPORT INFORMATION
  Report Type: Spontaneous
  Country: GB (occurrence: GB)
  Receive Date: 20250507
  Receipt Date: 20250507
  Transmission Date: 20250717
  Serious: Yes (Other)
  Sender: RANBAXY
  Company Number: GB-MHRA-TPP22852593C9115784YC1745341367256

PATIENT
  Age: 82 Year
  Sex: Female
  Weight: 58 kg

DRUGS (4)
  1. CIPROFLOXACIN [Suspect]
     Active Substance: CIPROFLOXACIN
     Indication: Ill-defined disorder
     Route: 048
  2. Softpore [Concomitant]
     Indication: Ill-defined disorder
     Route: 065
     Dates: start: 20250324, end: 20250407
  3. Inadine [Concomitant]
     Indication: Ill-defined disorder
     Route: 065
     Dates: start: 20250324, end: 20250407
  4. ACETAMINOPHEN [Concomitant]
     Active Substance: ACETAMINOPHEN
     Indication: Ill-defined disorder
     Route: 065
     Dates: start: 20250422

REACTIONS (1)
  - Drug hypersensitivity [Unknown]
